FAERS Safety Report 14844829 (Version 2)
Quarter: 2018Q2

REPORT INFORMATION
  Report Type: Spontaneous
  Country: DE (occurrence: DE)
  Receive Date: 20180504
  Receipt Date: 20180517
  Transmission Date: 20180711
  Serious: Yes (Hospitalization, Other)
  Sender: FDA-Public Use
  Company Number: DE-ROCHE-2072342

PATIENT
  Age: 46 Year
  Sex: Female

DRUGS (21)
  1. MABTHERA [Suspect]
     Active Substance: RITUXIMAB
     Dosage: MAINTENANCE THERAPY, 3 ADMINISTRATIONS
     Route: 042
     Dates: start: 201208, end: 201408
  2. CORTISON [Concomitant]
     Active Substance: CORTISONE ACETATE
     Route: 065
  3. COTRIMOXAZOL [Concomitant]
     Active Substance: SULFAMETHOXAZOLE\TRIMETHOPRIM
     Route: 065
     Dates: start: 1996
  4. LEFLUNOMID [Concomitant]
     Active Substance: LEFLUNOMIDE
     Route: 065
     Dates: start: 2016, end: 2017
  5. VALSARTAN. [Concomitant]
     Active Substance: VALSARTAN
     Route: 065
  6. MABTHERA [Suspect]
     Active Substance: RITUXIMAB
     Dosage: 2 ADMINISTRATIONS
     Route: 042
     Dates: start: 201201
  7. MABTHERA [Suspect]
     Active Substance: RITUXIMAB
     Dosage: MAINTENANCE THERAPY, 3 ADMINISTRATIONS
     Route: 042
     Dates: start: 201601, end: 201703
  8. CELLCEPT [Suspect]
     Active Substance: MYCOPHENOLATE MOFETIL\MYCOPHENOLATE MOFETIL HYDROCHLORIDE
     Indication: PRODUCT USED FOR UNKNOWN INDICATION
     Route: 065
     Dates: start: 2007, end: 201610
  9. METHOTREXATE. [Concomitant]
     Active Substance: METHOTREXATE
  10. PREDNISOLON [Concomitant]
     Active Substance: PREDNISOLONE
     Route: 065
  11. LODOTRA [Concomitant]
     Active Substance: PREDNISONE
     Route: 065
  12. COTRIM [Concomitant]
     Active Substance: SULFAMETHOXAZOLE\TRIMETHOPRIM
     Route: 065
  13. QUENSYL [Concomitant]
     Active Substance: HYDROXYCHLOROQUINE
     Route: 065
     Dates: start: 201704
  14. MABTHERA [Suspect]
     Active Substance: RITUXIMAB
     Dosage: MAINTENANCE THERAPY, 2 ADMINISTRATIONS
     Route: 042
     Dates: start: 201502, end: 201509
  15. PROGESTAN [Concomitant]
     Active Substance: PROGESTERONE
     Route: 065
  16. MYFORTIC [Concomitant]
     Active Substance: MYCOPHENOLATE SODIUM
     Indication: GRANULOMATOSIS WITH POLYANGIITIS
  17. MABTHERA [Suspect]
     Active Substance: RITUXIMAB
     Indication: GRANULOMATOSIS WITH POLYANGIITIS
     Route: 042
     Dates: start: 2012
  18. ABATACEPT [Concomitant]
     Active Substance: ABATACEPT
     Route: 058
     Dates: start: 201704
  19. ESOMEPRAZOL [Concomitant]
     Active Substance: ESOMEPRAZOLE
     Route: 065
  20. VIGANTOL [Concomitant]
     Active Substance: CHOLECALCIFEROL
     Route: 065
  21. OPIPRAMOL [Concomitant]
     Active Substance: OPIPRAMOL
     Route: 065

REACTIONS (14)
  - Arthritis [Not Recovered/Not Resolved]
  - Chronic sinusitis [Not Recovered/Not Resolved]
  - T-lymphocyte count increased [Unknown]
  - Oral herpes [Unknown]
  - Tenosynovitis [Unknown]
  - Episcleritis [Unknown]
  - Arthralgia [Not Recovered/Not Resolved]
  - Carpal tunnel syndrome [Not Recovered/Not Resolved]
  - Blood immunoglobulin M decreased [Unknown]
  - Granulomatosis with polyangiitis [Recovered/Resolved]
  - Laryngitis [Recovered/Resolved]
  - Cutaneous vasculitis [Not Recovered/Not Resolved]
  - Bronchial hyperreactivity [Unknown]
  - Depression [Unknown]

NARRATIVE: CASE EVENT DATE: 201509
